FAERS Safety Report 17068159 (Version 1)
Quarter: 2019Q4

REPORT INFORMATION
  Report Type: Spontaneous
  Country: HK (occurrence: HK)
  Receive Date: 20191122
  Receipt Date: 20191122
  Transmission Date: 20200122
  Serious: Yes (Hospitalization)
  Sender: FDA-Public Use
  Company Number: HK-BAXTER-2019BAX023458

PATIENT
  Age: 60 Year
  Sex: Female

DRUGS (1)
  1. TISSEEL FROZEN [Suspect]
     Active Substance: FIBRINOGEN HUMAN\THROMBIN HUMAN
     Indication: HAEMOSTASIS
     Dosage: DOSE: 1 UNIT ?SPRAY ONTO THE WHOLE THORACIC AREA WOUND
     Route: 065

REACTIONS (2)
  - Post procedural complication [Unknown]
  - Postoperative wound infection [Unknown]

NARRATIVE: CASE EVENT DATE: 20191113
